FAERS Safety Report 16057122 (Version 1)
Quarter: 2019Q2

REPORT INFORMATION
  Report Type: Spontaneous
  Country: US (occurrence: US)
  Receive Date: 20190311
  Receipt Date: 20190311
  Transmission Date: 20190711
  Serious: Yes (Other)
  Sender: FDA-Public Use
  Company Number: None

PATIENT
  Age: 55 Year
  Sex: Female
  Weight: 112.5 kg

DRUGS (8)
  1. NAPROXEN SODIUM. [Concomitant]
     Active Substance: NAPROXEN SODIUM
  2. ESTRIADOL [Concomitant]
     Active Substance: ESTRADIOL
  3. VALTREX (VALACYCLOVIR) TAB [Concomitant]
  4. PENNSAID [Suspect]
     Active Substance: DICLOFENAC SODIUM
     Indication: ANALGESIC THERAPY
     Dosage: ?          OTHER STRENGTH:W/W;QUANTITY:0.5 PACKET;?
     Route: 061
     Dates: start: 20190301, end: 20190302
  5. PENNSAID [Concomitant]
     Active Substance: DICLOFENAC SODIUM
     Dosage: ?          OTHER STRENGTH:W/W;QUANTITY:2 PUMPS;?
     Route: 061
     Dates: start: 20190301, end: 20190302
  6. TOPICAL COCOA BUTTER [Concomitant]
  7. HYDROXZINE HCL [Concomitant]
  8. BETAMETHASONE DIPROPIONATE. [Concomitant]
     Active Substance: BETAMETHASONE DIPROPIONATE

REACTIONS (4)
  - Application site discolouration [None]
  - Skin reaction [None]
  - Application site pruritus [None]
  - Application site burn [None]

NARRATIVE: CASE EVENT DATE: 20190302
